FAERS Safety Report 24861632 (Version 1)
Quarter: 2025Q1

REPORT INFORMATION
  Report Type: Spontaneous
  Country: SE (occurrence: SE)
  Receive Date: 20250120
  Receipt Date: 20250120
  Transmission Date: 20250409
  Serious: Yes (Other)
  Sender: GLAXOSMITHKLINE
  Company Number: None

PATIENT

DRUGS (3)
  1. LAMICTAL [Suspect]
     Active Substance: LAMOTRIGINE
     Indication: Product used for unknown indication
     Dosage: 100 MG, BID (1+0+1)
     Route: 048
     Dates: start: 20240221, end: 20241201
  2. RISPERIDONE [Concomitant]
     Active Substance: RISPERIDONE
     Indication: Product used for unknown indication
     Dosage: 1 MG, BID (1+0+1)
     Route: 048
     Dates: start: 20240521, end: 20241201
  3. PROPIOMAZIN ORIFARM [Concomitant]
     Indication: Product used for unknown indication
     Route: 048
     Dates: start: 20191111

REACTIONS (2)
  - Gingival bleeding [Recovered/Resolved]
  - Toothache [Recovered/Resolved]

NARRATIVE: CASE EVENT DATE: 20241201
